FAERS Safety Report 16709038 (Version 1)
Quarter: 2019Q3

REPORT INFORMATION
  Report Type: Spontaneous
  Country: GB (occurrence: GB)
  Receive Date: 20190816
  Receipt Date: 20190816
  Transmission Date: 20191004
  Serious: Yes (Other)
  Sender: FDA-Public Use
  Company Number: GB-ACCORD-151701

PATIENT
  Age: 67 Year
  Sex: Male
  Weight: 92 kg

DRUGS (6)
  1. LANSOPRAZOLE. [Concomitant]
     Active Substance: LANSOPRAZOLE
     Dates: start: 20180816
  2. HYDROCORTISONE. [Concomitant]
     Active Substance: HYDROCORTISONE
     Dosage: APPLY THINLY.
     Dates: start: 20190722
  3. ALLOPURINOL. [Suspect]
     Active Substance: ALLOPURINOL
     Indication: PRODUCT USED FOR UNKNOWN INDICATION
     Dates: start: 20190704, end: 20190722
  4. SIMVASTATIN. [Concomitant]
     Active Substance: SIMVASTATIN
     Dosage: EVERY NIGHT.
     Dates: start: 20190116
  5. COLCHICINE. [Concomitant]
     Active Substance: COLCHICINE
     Dosage: ONE TO BE TAKEN 2-4 TIMES A DAY
     Dates: start: 20190613, end: 20190616
  6. NAPROXEN. [Concomitant]
     Active Substance: NAPROXEN
     Dates: start: 20190603, end: 20190617

REACTIONS (2)
  - Rash [Recovering/Resolving]
  - Lip pain [Recovering/Resolving]

NARRATIVE: CASE EVENT DATE: 20190722
